FAERS Safety Report 6499984-X (Version None)
Quarter: 2009Q4

REPORT INFORMATION
  Report Type: 
  Country: None (occurrence: None)
  Receive Date: 20091216
  Receipt Date: 20091214
  Transmission Date: 20100525
  Serious: Yes (Other)
  Sender: FDA-Public Use
  Company Number: US-TEVA-217970USA

PATIENT
  Age: 29 Year
  Sex: Male

DRUGS (3)
  1. METHYLPREDNISOLONE TABLET 4MG [Suspect]
     Route: 014
  2. BUPIVACAINE [Concomitant]
  3. LIDOCAINE [Concomitant]

REACTIONS (1)
  - CHORIORETINOPATHY [None]
